FAERS Safety Report 8110835-X (Version None)
Quarter: 2012Q1

REPORT INFORMATION
  Report Type: 
  Country: None (occurrence: None)
  Receive Date: 20120203
  Receipt Date: 20120126
  Transmission Date: 20120608
  Serious: Yes (Hospitalization)
  Sender: FDA-Public Use
  Company Number: US-BAYER-201036935NA

PATIENT
  Age: 32 Year
  Sex: Female
  Weight: 86 kg

DRUGS (4)
  1. YASMIN [Suspect]
     Indication: PREMENSTRUAL SYNDROME
     Dosage: UNK
     Route: 048
     Dates: start: 20060601, end: 20060801
  2. YAZ [Suspect]
     Dosage: UNK
     Dates: start: 20081201, end: 20090124
  3. YASMIN [Suspect]
     Dosage: UNK
     Dates: start: 20081212, end: 20090124
  4. CYMBALTA [Concomitant]
     Indication: SEASONAL AFFECTIVE DISORDER
     Dosage: UNK
     Dates: start: 20080501, end: 20081201

REACTIONS (3)
  - SYNCOPE [None]
  - PULMONARY EMBOLISM [None]
  - CONTUSION [None]
